FAERS Safety Report 9092977 (Version 1)
Quarter: 2013Q1

REPORT INFORMATION
  Report Type: Spontaneous
  Country: US (occurrence: None)
  Receive Date: 20130213
  Receipt Date: 20130213
  Transmission Date: 20140127
  Serious: Yes (Other)
  Sender: FDA-Public Use
  Company Number: None

PATIENT
  Age: 72 Year
  Sex: Female
  Weight: 50 kg

DRUGS (1)
  1. FORTEO 20 MCG LILLY [Suspect]
     Indication: OSTEOPOROSIS
     Dates: start: 20130120, end: 20130129

REACTIONS (2)
  - Dyspnoea [None]
  - Palpitations [None]
